FAERS Safety Report 9061775 (Version 1)
Quarter: 2013Q1

REPORT INFORMATION
  Report Type: Spontaneous
  Country: US (occurrence: None)
  Receive Date: 20130122
  Receipt Date: 20130122
  Transmission Date: 20140127
  Serious: Yes (Hospitalization, Other)
  Sender: FDA-Public Use
  Company Number: 2012P1000593

PATIENT
  Age: 79 Year
  Sex: Female
  Weight: 81.65 kg

DRUGS (3)
  1. DIGOXIN [Suspect]
     Route: 048
     Dates: start: 20110305, end: 20121004
  2. BLINDED TRIAL MEDICATION [Suspect]
     Route: 048
     Dates: start: 20090929
  3. DILTIAZEM HYDROCHLORIDE (FORMULATION UNKNOWN) (DILTIAZEM HYDROCHLORIDE) [Suspect]
     Route: 048
     Dates: start: 20121003, end: 20121004

REACTIONS (2)
  - Atrial fibrillation [None]
  - Sick sinus syndrome [None]
